FAERS Safety Report 7031774-1 (Version None)
Quarter: 2010Q4

REPORT INFORMATION
  Report Type: 
  Country: None (occurrence: None)
  Receive Date: 20101007
  Receipt Date: 20100927
  Transmission Date: 20110411
  Serious: No
  Sender: FDA-Public Use
  Company Number: US-BIOGENIDEC-2010BI033851

PATIENT
  Age: 51 Year
  Sex: Female

DRUGS (3)
  1. TYSABRI [Suspect]
     Indication: MULTIPLE SCLEROSIS
     Route: 042
     Dates: start: 20100428
  2. CLARITIN [Concomitant]
     Indication: HYPERSENSITIVITY
  3. PRIVASET (PRESUMABLY PREVACID) [Concomitant]
     Indication: HYPERSENSITIVITY

REACTIONS (2)
  - DRUG SPECIFIC ANTIBODY PRESENT [None]
  - HYPERSENSITIVITY [None]
